FAERS Safety Report 7888857-3 (Version None)
Quarter: 2011Q4

REPORT INFORMATION
  Report Type: 
  Country: None (occurrence: None)
  Receive Date: 20111103
  Receipt Date: 20111027
  Transmission Date: 20120403
  Serious: Yes (Other)
  Sender: FDA-Public Use
  Company Number: DE-JNJFOC-20110901168

PATIENT
  Age: 47 Year
  Sex: Female
  Weight: 54 kg

DRUGS (7)
  1. VERAPAMIL [Concomitant]
     Route: 048
  2. USTEKINUMAB [Suspect]
     Indication: PSORIASIS
     Route: 058
     Dates: start: 20100825, end: 20101215
  3. MELOXICAM [Concomitant]
     Route: 048
  4. ACETAMINOPHEN [Concomitant]
     Route: 048
  5. ADALIMUMAB [Concomitant]
     Route: 048
     Dates: end: 20110215
  6. PREDNISOLONE [Concomitant]
     Route: 048
  7. MICARDIS [Concomitant]
     Route: 048

REACTIONS (1)
  - SKIN PAPILLOMA [None]
